FAERS Safety Report 21539852 (Version 1)
Quarter: 2022Q4

REPORT INFORMATION
  Report Type: Report from Study
  Country: KR (occurrence: KR)
  Receive Date: 20221102
  Receipt Date: 20221102
  Transmission Date: 20230113
  Serious: Yes (Hospitalization, Other)
  Sender: FDA-Public Use
  Company Number: KR-TAKEDA-2022TUS079707

PATIENT
  Age: 57 Year
  Sex: Male
  Weight: 54 kg

DRUGS (25)
  1. VEDOLIZUMAB [Suspect]
     Active Substance: VEDOLIZUMAB
     Indication: Crohn^s disease
     Dosage: 300 MILLIGRAM
     Route: 042
     Dates: start: 20201130
  2. MOSAPRIDE CITRATE [Concomitant]
     Active Substance: MOSAPRIDE CITRATE
     Dosage: 5 MILLIGRAM, BID
     Route: 048
     Dates: start: 20190826, end: 20210303
  3. TWYNSTA [Concomitant]
     Active Substance: AMLODIPINE BESYLATE\TELMISARTAN
     Dosage: UNK UNK, QD
     Route: 048
     Dates: start: 20200217, end: 20210303
  4. MEDILAC DS [Concomitant]
     Dosage: 250 MILLIGRAM, BID
     Route: 048
     Dates: start: 20200406, end: 20210303
  5. MEDILAC DS [Concomitant]
     Dosage: 250 MILLIGRAM, TID
     Route: 048
     Dates: start: 20210310
  6. DONGA ACETAMINOPHEN [Concomitant]
     Dosage: 40 MILLIGRAM, QD
     Route: 048
     Dates: start: 20200820, end: 20210310
  7. DONGA ACETAMINOPHEN [Concomitant]
     Dosage: 40 MILLIGRAM, QD
     Route: 048
     Dates: start: 20210310
  8. Esomezol [Concomitant]
     Dosage: 20 MILLIGRAM, QD
     Route: 048
     Dates: start: 20200406, end: 20210303
  9. Haprep [Concomitant]
     Indication: Bowel preparation
     Dosage: 2000 MILLILITER
     Route: 048
     Dates: start: 20210304, end: 20210304
  10. BUTYLSCOPOLAMINE BROMIDE [Concomitant]
     Active Substance: BUTYLSCOPOLAMINE BROMIDE
     Indication: Bowel preparation
     Dosage: 20 MILLIGRAM
     Route: 042
     Dates: start: 20210304, end: 20210304
  11. PENIRAMIN [Concomitant]
     Indication: Prophylaxis
     Dosage: 4 MILLIGRAM
     Route: 042
     Dates: start: 20210304, end: 20210305
  12. ACETAMINOPHEN [Concomitant]
     Active Substance: ACETAMINOPHEN
     Indication: Adverse event
     Dosage: UNK
     Route: 048
     Dates: start: 20210304, end: 20210304
  13. PROPACETAMOL HYDROCHLORIDE [Concomitant]
     Active Substance: PROPACETAMOL HYDROCHLORIDE
     Indication: Adverse event
     Dosage: 1000 MILLIGRAM
     Route: 042
     Dates: start: 20210304, end: 20210304
  14. SMOFKABIVEN PERIPHERAL [Concomitant]
     Indication: Nutritional supplementation
     Dosage: 1448 MILLILITER, QD
     Route: 042
     Dates: start: 20210304, end: 20210308
  15. NEXIUM [Concomitant]
     Active Substance: ESOMEPRAZOLE MAGNESIUM
     Indication: Gastrointestinal disorder prophylaxis
     Dosage: 40 MILLIGRAM, QD
     Route: 042
     Dates: start: 20210304, end: 20210308
  16. HYDROCORTISONE SODIUM SUCCINATE [Concomitant]
     Active Substance: HYDROCORTISONE SODIUM SUCCINATE
     Indication: Adverse event
     Dosage: 100 MILLIGRAM, TID
     Route: 042
     Dates: start: 20210304, end: 20210308
  17. VITAMINS [Concomitant]
     Active Substance: VITAMINS
     Indication: Nutritional supplementation
     Dosage: 5 MILLILITER, QD
     Route: 042
     Dates: start: 20210306, end: 20210308
  18. FURTMAN [Concomitant]
     Indication: Nutritional supplementation
     Dosage: 1 MILLIGRAM, QD
     Route: 042
     Dates: start: 20210306, end: 20210308
  19. FERINJECT [Concomitant]
     Active Substance: FERRIC CARBOXYMALTOSE
     Dosage: 10 MILLILITER, QD
     Route: 042
     Dates: start: 20201130, end: 20201130
  20. FERINJECT [Concomitant]
     Active Substance: FERRIC CARBOXYMALTOSE
     Dosage: 10 MILLILITER
     Route: 042
     Dates: start: 20210308, end: 20210308
  21. PENTASA [Concomitant]
     Active Substance: MESALAMINE
     Dosage: 2000 MILLIGRAM, BID
     Route: 048
     Dates: start: 20211003
  22. Almagel [Concomitant]
     Dosage: 15 MILLILITER, TID
     Dates: start: 20201113, end: 20201213
  23. VALIUM [Concomitant]
     Active Substance: DIAZEPAM
     Dosage: 5 MILLIGRAM, QD
     Route: 048
     Dates: start: 20201130, end: 20201213
  24. PREDNISOLONE [Concomitant]
     Active Substance: PREDNISOLONE
     Indication: Adverse event
     Dosage: 40 MILLIGRAM, QD
     Route: 048
     Dates: start: 20210308
  25. PANTOPRAZOLE SODIUM [Concomitant]
     Active Substance: PANTOPRAZOLE SODIUM
     Indication: Prophylaxis against gastrointestinal ulcer
     Dosage: 40 MILLIGRAM, QD
     Route: 048
     Dates: start: 20210309

REACTIONS (1)
  - Crohn^s disease [Recovered/Resolved]

NARRATIVE: CASE EVENT DATE: 20210304
